FAERS Safety Report 8502694-8 (Version None)
Quarter: 2012Q3

REPORT INFORMATION
  Report Type: 
  Country: None (occurrence: None)
  Receive Date: 20120702
  Receipt Date: 20120621
  Transmission Date: 20120928
  Serious: Yes (Hospitalization)
  Sender: FDA-Public Use
  Company Number: DKLU1082534

PATIENT
  Age: 24 Year
  Sex: Female

DRUGS (3)
  1. ONFI [Suspect]
     Indication: EPILEPSY
     Dosage: 20 MG MILLIGRAM(S), 1 IN 1 D, ORAL : 5 MG MILLIGRAM(S), 3 IN 1 D, ORAL
     Route: 048
     Dates: start: 20120528
  2. TRILEPTAL [Suspect]
     Indication: EPILEPSY
     Dosage: 600 MG MILLIGRAM(S), 3 IN 1 D, ORAL
     Route: 048
  3. LAMICTAL [Suspect]
     Indication: EPILEPSY
     Dosage: 200 MG MILLIGRAM(S), 2 IN 1 D, ORAL
     Route: 048

REACTIONS (5)
  - GRAND MAL CONVULSION [None]
  - DIPLOPIA [None]
  - SOMNOLENCE [None]
  - HEADACHE [None]
  - NYSTAGMUS [None]
